FAERS Safety Report 25177889 (Version 1)
Quarter: 2025Q2

REPORT INFORMATION
  Report Type: Spontaneous
  Country: US (occurrence: None)
  Receive Date: 20250408
  Receipt Date: 20250408
  Transmission Date: 20250716
  Serious: Yes (Hospitalization)
  Sender: FDA-CTU
  Company Number: None

PATIENT
  Age: 31 Year
  Sex: Female

DRUGS (3)
  1. AMBRISENTAN [Suspect]
     Active Substance: AMBRISENTAN
     Indication: Pulmonary arterial hypertension
     Dosage: 5 MG DAILY ORAL ?
     Route: 048
     Dates: start: 20240426
  2. SILDENAFIL CITRATE [Suspect]
     Active Substance: SILDENAFIL CITRATE
     Indication: Pulmonary arterial hypertension
     Dosage: 20 MG 3 TIMES A DAY ORAL?
     Route: 048
     Dates: start: 20240516
  3. REMODULIN [Suspect]
     Active Substance: TREPROSTINIL

REACTIONS (2)
  - Device related infection [None]
  - Bacterial test positive [None]

NARRATIVE: CASE EVENT DATE: 20250329
